FAERS Safety Report 11545753 (Version 2)
Quarter: 2015Q3

REPORT INFORMATION
  Report Type: Spontaneous
  Country: US (occurrence: US)
  Receive Date: 20150924
  Receipt Date: 20150924
  Transmission Date: 20151125
  Serious: No
  Sender: FDA-Public Use
  Company Number: US-GLAXOSMITHKLINE-US2015134997

PATIENT
  Age: 75 Year
  Sex: Female

DRUGS (10)
  1. AZITHROMYCIN [Concomitant]
     Active Substance: AZITHROMYCIN ANHYDROUS
  2. PAXIL [Concomitant]
     Active Substance: PAROXETINE HYDROCHLORIDE
  3. LORAZEPAM. [Concomitant]
     Active Substance: LORAZEPAM
  4. SYNTHROID [Concomitant]
     Active Substance: LEVOTHYROXINE SODIUM
  5. VALSARTAN. [Concomitant]
     Active Substance: VALSARTAN
  6. VENTOLIN [Concomitant]
     Active Substance: ALBUTEROL SULFATE
  7. ANORO ELLIPTA [Suspect]
     Active Substance: UMECLIDINIUM BROMIDE\VILANTEROL TRIFENATATE
     Indication: INTERSTITIAL LUNG DISEASE
     Dosage: 1 PUFF(S), QD
     Route: 055
     Dates: start: 201506
  8. METOPROLOL [Concomitant]
     Active Substance: METOPROLOL
  9. CLONIDINE. [Concomitant]
     Active Substance: CLONIDINE
  10. ALBUTEROL INHALATIONAL POWDER [Concomitant]
     Active Substance: ALBUTEROL

REACTIONS (1)
  - Hypertension [Not Recovered/Not Resolved]

NARRATIVE: CASE EVENT DATE: 201506
